FAERS Safety Report 25755711 (Version 1)
Quarter: 2025Q3

REPORT INFORMATION
  Report Type: Spontaneous
  Country: CA (occurrence: CA)
  Receive Date: 20250903
  Receipt Date: 20250903
  Transmission Date: 20251021
  Serious: Yes (Disabling)
  Sender: NOVARTIS
  Company Number: CA-002147023-NVSC2025CA123076

PATIENT
  Age: 58 Year
  Sex: Female

DRUGS (2)
  1. COSENTYX [Suspect]
     Active Substance: SECUKINUMAB
     Indication: Product used for unknown indication
     Route: 058
     Dates: start: 20250715, end: 20250729
  2. EFFEXOR [Concomitant]
     Active Substance: VENLAFAXINE HYDROCHLORIDE
     Indication: Product used for unknown indication
     Route: 065

REACTIONS (7)
  - Blood glucose decreased [Unknown]
  - Dizziness [Unknown]
  - Withdrawal syndrome [Unknown]
  - Concomitant drug effect decreased [Unknown]
  - Insomnia [Unknown]
  - Nightmare [Unknown]
  - Emotional disorder [Unknown]

NARRATIVE: CASE EVENT DATE: 20250715
